FAERS Safety Report 5524676-0 (Version None)
Quarter: 2007Q4

REPORT INFORMATION
  Report Type: 
  Country: None (occurrence: None)
  Receive Date: 20071123
  Receipt Date: 20071113
  Transmission Date: 20080405
  Serious: Yes (Other)
  Sender: FDA-Public Use
  Company Number: US-ROCHE-525383

PATIENT
  Age: 50 Year
  Sex: Female

DRUGS (4)
  1. PEG-INTERFERON A-2A (RO 25-8310) [Suspect]
     Dosage: REPORTED AS PEGASYS. FORM REPORTED: VIALS. REPORTED TO BE IN WEEK 6 OF THERAPY.
     Route: 065
     Dates: start: 20071003
  2. RIBAVIRIN [Suspect]
     Dosage: REPORTED TO BE IN WEEK 6 OF THERAPY.
     Route: 065
     Dates: start: 20071003
  3. PAXIL [Concomitant]
  4. SEROQUEL [Concomitant]

REACTIONS (2)
  - MEDICATION ERROR [None]
  - PULMONARY MASS [None]
